FAERS Safety Report 7875438-0 (Version None)
Quarter: 2011Q4

REPORT INFORMATION
  Report Type: 
  Country: None (occurrence: None)
  Receive Date: 20111031
  Receipt Date: 20111020
  Transmission Date: 20120403
  Serious: Yes (Hospitalization, Disabling)
  Sender: FDA-Public Use
  Company Number: PHFR2011GB01221

PATIENT
  Sex: Male

DRUGS (2)
  1. CITALOPRAM HYDROBROMIDE [Concomitant]
     Indication: DEPRESSED MOOD
     Dosage: 60 MG/DAY
  2. CLOZARIL [Suspect]
     Indication: SCHIZOPHRENIA
     Dosage: 550 MG/DAY
     Route: 048
     Dates: start: 19950830, end: 20110401

REACTIONS (3)
  - DYSPNOEA [None]
  - INTERSTITIAL LUNG DISEASE [None]
  - PULMONARY FUNCTION TEST DECREASED [None]
